FAERS Safety Report 5803121-1 (Version None)
Quarter: 2008Q3

REPORT INFORMATION
  Report Type: 
  Country: None (occurrence: None)
  Receive Date: 20080708
  Receipt Date: 20080703
  Transmission Date: 20090109
  Serious: Yes (Hospitalization)
  Sender: FDA-Public Use
  Company Number: DE-MERCK-0807DEU00021

PATIENT
  Age: 76 Year
  Sex: Male
  Weight: 92 kg

DRUGS (1)
  1. JANUVIA [Suspect]
     Indication: DIABETES MELLITUS
     Route: 048
     Dates: start: 20080201, end: 20080609

REACTIONS (1)
  - PANCREATITIS ACUTE [None]
